FAERS Safety Report 8956874 (Version 1)
Quarter: 2012Q4

REPORT INFORMATION
  Report Type: 
  Country: US (occurrence: US)
  Receive Date: 20121210
  Receipt Date: 20121210
  Transmission Date: 20130627
  Serious: No
  Sender: FDA-Public Use
  Company Number: US-B.I. PHARMACEUTICALS,INC./RIDGEFIELD-2012-BI-01989BP

PATIENT
  Age: 38 Year
  Sex: Female

DRUGS (2)
  1. ATROVENT [Suspect]
     Indication: PNEUMONIA
     Dosage: 68 mcg
     Route: 055
     Dates: start: 20121126
  2. DOXYCYCLINE [Concomitant]
     Indication: ANTIBIOTIC THERAPY
     Dosage: 400 mg
     Route: 048
     Dates: start: 20121126

REACTIONS (3)
  - Dyspnoea [Not Recovered/Not Resolved]
  - Cough [Not Recovered/Not Resolved]
  - Drug ineffective [Recovered/Resolved]
